FAERS Safety Report 5425777-8 (Version None)
Quarter: 2007Q3

REPORT INFORMATION
  Report Type: 
  Country: None (occurrence: None)
  Receive Date: 20070825
  Receipt Date: 20070518
  Transmission Date: 20080115
  Serious: Yes (Other)
  Sender: FDA-Public Use
  Company Number: ES-MERCK-0705ESP00033

PATIENT
  Age: 52 Year
  Sex: Female

DRUGS (2)
  1. MAXALT-MLT [Suspect]
     Indication: MIGRAINE
     Route: 048
     Dates: start: 20070305, end: 20070305
  2. MAXALT-MLT [Suspect]
     Route: 048

REACTIONS (4)
  - APATHY [None]
  - BLOOD PRESSURE INCREASED [None]
  - HEADACHE [None]
  - PERIPHERAL COLDNESS [None]
